FAERS Safety Report 23547217 (Version 3)
Quarter: 2024Q2

REPORT INFORMATION
  Report Type: Report from Study
  Country: US (occurrence: US)
  Receive Date: 20240221
  Receipt Date: 20240608
  Transmission Date: 20240716
  Serious: Yes (Hospitalization)
  Sender: FDA-Public Use
  Company Number: US-ABBVIE-5645331

PATIENT
  Sex: Female
  Weight: 54 kg

DRUGS (1)
  1. RINVOQ [Suspect]
     Active Substance: UPADACITINIB
     Indication: Rheumatoid arthritis
     Dosage: 15 MILLIGRAM?FORM STRENGTH: 15 MG
     Route: 048

REACTIONS (9)
  - Fall [Recovering/Resolving]
  - Muscular weakness [Unknown]
  - Asthenia [Unknown]
  - Pain [Unknown]
  - Blood test abnormal [Recovered/Resolved]
  - Mouth ulceration [Unknown]
  - Peripheral swelling [Unknown]
  - Diabetes mellitus [Not Recovered/Not Resolved]
  - Headache [Unknown]
